FAERS Safety Report 13354760 (Version 1)
Quarter: 2017Q1

REPORT INFORMATION
  Report Type: Spontaneous
  Country: NO (occurrence: NO)
  Receive Date: 20170321
  Receipt Date: 20170321
  Transmission Date: 20170429
  Serious: Yes (Life-Threatening, Other)
  Sender: FDA-Public Use
  Company Number: NO-SA-2017SA042035

PATIENT
  Age: 43 Year
  Sex: Female

DRUGS (6)
  1. CIPRALEX [Concomitant]
     Active Substance: ESCITALOPRAM OXALATE
     Dates: end: 201703
  2. LEMTRADA [Suspect]
     Active Substance: ALEMTUZUMAB
     Indication: MULTIPLE SCLEROSIS
     Route: 041
     Dates: start: 201505, end: 201505
  3. FAMPYRA [Concomitant]
     Active Substance: DALFAMPRIDINE
  4. BACLOFEN. [Concomitant]
     Active Substance: BACLOFEN
  5. TITRALAC [Concomitant]
     Active Substance: CALCIUM CARBONATE
  6. LEMTRADA [Suspect]
     Active Substance: ALEMTUZUMAB
     Indication: MULTIPLE SCLEROSIS
     Route: 041
     Dates: start: 201405, end: 201405

REACTIONS (4)
  - Immune thrombocytopenic purpura [Unknown]
  - Blood thyroid stimulating hormone decreased [Not Recovered/Not Resolved]
  - Thrombocytopenia [Not Recovered/Not Resolved]
  - Anti-thyroid antibody positive [Not Recovered/Not Resolved]

NARRATIVE: CASE EVENT DATE: 201607
